FAERS Safety Report 13842495 (Version 2)
Quarter: 2017Q3

REPORT INFORMATION
  Report Type: Spontaneous
  Country: DE (occurrence: DE)
  Receive Date: 20170808
  Receipt Date: 20170823
  Transmission Date: 20171127
  Serious: Yes (Hospitalization, Other)
  Sender: FDA-Public Use
  Company Number: DE-DRREDDYS-GER/GER/17/0092213

PATIENT
  Age: 64 Year
  Sex: Female
  Weight: 74 kg

DRUGS (4)
  1. FEM 7 COMBI [Concomitant]
     Indication: HORMONE REPLACEMENT THERAPY
     Dosage: SINCE 10 YEARS
     Route: 062
  2. TERBINAFIN BETA 250 MG TABLETTEN [Suspect]
     Active Substance: TERBINAFINE
     Indication: ONYCHOMYCOSIS
     Route: 048
     Dates: start: 20170427
  3. LOSARTAN 50 MG [Concomitant]
     Active Substance: LOSARTAN
     Indication: HYPERTENSION
     Dosage: FOR 1.5 YEARS
     Route: 048
  4. TERBINAFIN BETA 250 MG TABLETTEN [Suspect]
     Active Substance: TERBINAFINE
     Route: 048
     Dates: end: 20170621

REACTIONS (3)
  - Uterine polyp [Recovered/Resolved]
  - Back pain [Recovered/Resolved]
  - Postmenopausal haemorrhage [Recovered/Resolved]

NARRATIVE: CASE EVENT DATE: 20170609
